FAERS Safety Report 4691113-8 (Version None)
Quarter: 2005Q2

REPORT INFORMATION
  Report Type: 
  Country: None (occurrence: None)
  Receive Date: 20050610
  Receipt Date: 20050527
  Transmission Date: 20051028
  Serious: Yes (Hospitalization)
  Sender: FDA-Public Use
  Company Number: 2005RL000063

PATIENT
  Age: 89 Year
  Sex: Female

DRUGS (6)
  1. PROPAFENONE HYDROCHLORIDE [Suspect]
     Indication: ATRIAL FIBRILLATION
     Dosage: 300 MG; QD; PO
     Route: 048
     Dates: start: 20030701, end: 20050503
  2. IBUPROFEN SODIUM [Concomitant]
  3. SPIRONOLACTONE [Concomitant]
  4. FUROSEMIDE [Concomitant]
  5. PANTOPRAZOLE SODIUM [Concomitant]
  6. BROTIZOLAM [Concomitant]

REACTIONS (3)
  - ATRIOVENTRICULAR BLOCK FIRST DEGREE [None]
  - BRADYCARDIA [None]
  - NODAL RHYTHM [None]
